FAERS Safety Report 8859672 (Version 2)
Quarter: 2013Q3

REPORT INFORMATION
  Report Type: Spontaneous
  Country: US (occurrence: US)
  Receive Date: 20121025
  Receipt Date: 20130823
  Transmission Date: 20140515
  Serious: Yes (Other)
  Sender: FDA-Public Use
  Company Number: US-ABBOTT-12P-163-0892552-00

PATIENT
  Age: 27 Year
  Sex: Female

DRUGS (6)
  1. LUPRON DEPOT 3.75 MG [Suspect]
     Indication: ENDOMETRIOSIS
     Dates: start: 20110408
  2. LUPRON DEPOT 3.75 MG [Suspect]
     Dates: start: 201105
  3. PROMETRIUM [Suspect]
     Indication: PRODUCT USED FOR UNKNOWN INDICATION
     Dosage: THROUGH FIRST TRIMESTER
     Route: 048
     Dates: start: 201105
  4. LIDOCAINE [Suspect]
     Indication: PRODUCT USED FOR UNKNOWN INDICATION
  5. OXYCONTIN [Concomitant]
     Indication: PAIN
  6. PRENATAL VITAMINS [Concomitant]
     Indication: VITAMIN SUPPLEMENTATION
     Route: 048
     Dates: start: 20110427

REACTIONS (5)
  - Pre-eclampsia [Unknown]
  - Endometriosis [Unknown]
  - Hypersensitivity [Unknown]
  - Pain [Unknown]
  - Proteinuria [Unknown]
